FAERS Safety Report 6127851-X (Version None)
Quarter: 2009Q1

REPORT INFORMATION
  Report Type: 
  Country: None (occurrence: None)
  Receive Date: 20090320
  Receipt Date: 20090320
  Transmission Date: 20090719
  Serious: Yes (Other)
  Sender: FDA-Public Use
  Company Number: None

PATIENT
  Age: 66 Year
  Sex: Female
  Weight: 91.173 kg

DRUGS (2)
  1. SIMVASTATIN [Suspect]
     Indication: BLOOD CHOLESTEROL INCREASED
     Dosage: 20 MG. TABLET 1 PER EVENING
     Dates: start: 20090201, end: 20090224
  2. CRESTOR [Concomitant]

REACTIONS (8)
  - CARDIAC FLUTTER [None]
  - CHROMATURIA [None]
  - COLD SWEAT [None]
  - DYSPNOEA [None]
  - FEELING HOT [None]
  - NAUSEA [None]
  - PALPITATIONS [None]
  - VISION BLURRED [None]
